FAERS Safety Report 10483596 (Version 5)
Quarter: 2015Q4

REPORT INFORMATION
  Report Type: Report from Study
  Country: CA (occurrence: CA)
  Receive Date: 20140930
  Receipt Date: 20151103
  Transmission Date: 20160304
  Serious: Yes (Hospitalization, Other)
  Sender: FDA-Public Use
  Company Number: CA-JNJFOC-20140920721

PATIENT
  Age: 46 Year
  Sex: Female
  Weight: 66 kg

DRUGS (6)
  1. ATIVAN [Concomitant]
     Active Substance: LORAZEPAM
     Route: 048
  2. DOMPERIDONE [Concomitant]
     Active Substance: DOMPERIDONE
     Route: 048
  3. MERCAPTOPURINE. [Concomitant]
     Active Substance: MERCAPTOPURINE
     Route: 048
  4. REMICADE [Suspect]
     Active Substance: INFLIXIMAB
     Indication: COLITIS ULCERATIVE
     Dosage: THERAPY DURATION : 52 WEEKS
     Route: 042
     Dates: start: 20131012
  5. VITAMIN D [Concomitant]
     Active Substance: CHOLECALCIFEROL
     Route: 048
  6. AMERGE [Concomitant]
     Active Substance: NARATRIPTAN HYDROCHLORIDE
     Route: 048

REACTIONS (6)
  - Urinary tract infection [Recovering/Resolving]
  - Hysterectomy [Recovering/Resolving]
  - Excessive granulation tissue [Recovered/Resolved]
  - Vaginal infection [Recovered/Resolved]
  - Post procedural complication [Recovering/Resolving]
  - Ovarian cyst [Recovered/Resolved]

NARRATIVE: CASE EVENT DATE: 20140908
